FAERS Safety Report 7609164-X (Version None)
Quarter: 2011Q3

REPORT INFORMATION
  Report Type: 
  Country: None (occurrence: None)
  Receive Date: 20110714
  Receipt Date: 20110705
  Transmission Date: 20111222
  Serious: Yes (Hospitalization)
  Sender: FDA-Public Use
  Company Number: JP-ASTRAZENECA-2011SE31410

PATIENT
  Age: 67 Year
  Sex: Female

DRUGS (17)
  1. LANTUS [Concomitant]
     Route: 058
     Dates: start: 20110208
  2. CANDESARTAN CILEXETIL [Concomitant]
     Route: 048
     Dates: start: 20100305
  3. VITAMEDIN [Concomitant]
     Dosage: DOSE UNKNOWN
     Route: 065
     Dates: start: 20110419, end: 20110420
  4. LASIX [Concomitant]
     Route: 065
     Dates: start: 20100306
  5. LACTEC [Concomitant]
     Route: 041
     Dates: start: 20110418, end: 20110418
  6. FLUMARIN [Concomitant]
     Dosage: NUMBER OF SEPARATE DOSAGES UNKNOWN
     Route: 042
     Dates: start: 20110418, end: 20110422
  7. LEVOFLOXACIN [Concomitant]
     Route: 048
     Dates: start: 20110423, end: 20110425
  8. NOVORAPID [Concomitant]
     Route: 058
     Dates: start: 20101110
  9. FLAVERIC [Concomitant]
     Route: 048
     Dates: start: 20110427
  10. ASVERIN [Concomitant]
     Dosage: NUMBER OF SEPARATE DOSAGES UNKNOWN
     Route: 048
     Dates: start: 20110316, end: 20110421
  11. SEISHOKU [Concomitant]
     Route: 041
     Dates: start: 20110418, end: 20110422
  12. URSO 250 [Concomitant]
     Dosage: NUMBER OF SEPARATE DOSAGES UNKNOWN
     Route: 048
     Dates: start: 20090916
  13. FLAVERIC [Concomitant]
     Route: 048
     Dates: start: 20101201, end: 20110316
  14. FUROSEMIDE [Concomitant]
     Route: 065
     Dates: start: 20110418, end: 20110418
  15. LIVALO [Concomitant]
     Route: 048
     Dates: start: 20110422
  16. CRESTOR [Suspect]
     Route: 048
     Dates: start: 20110210, end: 20110421
  17. SOLITA-T NO.3 [Concomitant]
     Route: 041
     Dates: start: 20110419, end: 20110420

REACTIONS (1)
  - URINARY TRACT INFECTION [None]
